FAERS Safety Report 10700304 (Version 1)
Quarter: 2015Q1

REPORT INFORMATION
  Report Type: Spontaneous
  Country: TW (occurrence: None)
  Receive Date: 20150107
  Receipt Date: 20150107
  Transmission Date: 20150721
  Serious: Yes (Other)
  Sender: FDA-Public Use
  Company Number: FK201406552

PATIENT
  Age: 66 Year
  Sex: Male

DRUGS (4)
  1. REGORAFENIB [Suspect]
     Active Substance: REGORAFENIB
     Indication: COLON CANCER METASTATIC
  2. LEUCOVORIN CALCIUM. [Suspect]
     Active Substance: LEUCOVORIN CALCIUM
     Indication: COLON CANCER METASTATIC
  3. IRINOTECAN [Suspect]
     Active Substance: IRINOTECAN
     Indication: COLON CANCER METASTATIC
  4. FLUOROURACIL. [Suspect]
     Active Substance: FLUOROURACIL
     Indication: COLON CANCER METASTATIC

REACTIONS (6)
  - Palmar-plantar erythrodysaesthesia syndrome [None]
  - Metastases to lung [None]
  - Malignant neoplasm progression [None]
  - Carcinoembryonic antigen increased [None]
  - Fatigue [None]
  - Metastases to liver [None]
